FAERS Safety Report 18175616 (Version 1)
Quarter: 2020Q3

REPORT INFORMATION
  Report Type: Spontaneous
  Country: US (occurrence: US)
  Receive Date: 20200820
  Receipt Date: 20200820
  Transmission Date: 20201103
  Serious: No
  Sender: FDA-Public Use
  Company Number: US-JNJFOC-20200805370

PATIENT
  Age: 45 Year
  Sex: Female
  Weight: 45.4 kg

DRUGS (1)
  1. MENS ROGAINE EXTRA STRENGTH [Suspect]
     Active Substance: MINOXIDIL
     Indication: ALOPECIA
     Dosage: DOSE: HALF CAPFUL AMOUNT
     Route: 061
     Dates: start: 20200728, end: 20200730

REACTIONS (6)
  - Intentional product misuse [Unknown]
  - Application site pain [Recovering/Resolving]
  - Product use issue [Unknown]
  - Hot flush [Recovering/Resolving]
  - Overdose [Unknown]
  - Application site discolouration [Recovering/Resolving]

NARRATIVE: CASE EVENT DATE: 20200728
